FAERS Safety Report 9567001 (Version 1)
Quarter: 2013Q3

REPORT INFORMATION
  Report Type: Spontaneous
  Country: US (occurrence: US)
  Receive Date: 20130930
  Receipt Date: 20130930
  Transmission Date: 20140515
  Serious: No
  Sender: FDA-Public Use
  Company Number: US-AMGEN-USASP2012061454

PATIENT
  Sex: Male
  Weight: 97.51 kg

DRUGS (14)
  1. ENBREL [Suspect]
     Indication: PRODUCT USED FOR UNKNOWN INDICATION
     Dosage: 50 MG, QWK
  2. SYNTHROID [Concomitant]
     Indication: PRODUCT USED FOR UNKNOWN INDICATION
     Dosage: 137 MUG, UNK
  3. LISINOPRIL HCTZ [Concomitant]
     Dosage: 10-12.5, UNK
  4. VITAMIN D NOS [Concomitant]
     Dosage: 1000 UNIT, UNK
  5. MULTIVITAMIN                       /00097801/ [Concomitant]
     Dosage: UNK
  6. ASPIRIN [Concomitant]
     Dosage: 81 MG, UNK
  7. ADVAIR [Concomitant]
     Dosage: 250\50, UNK
  8. AZELASTINE [Concomitant]
     Dosage: 0.1 %, UNK
  9. PREVACID [Concomitant]
     Dosage: 30 MG, UNK
  10. LIPITOR [Concomitant]
     Dosage: 20 MG, UNK
  11. IMITREX                            /01044801/ [Concomitant]
     Dosage: 20MG/ACT
  12. ACETAMINOPHEN [Concomitant]
     Dosage: 500 MG, UNK
  13. SINGULAIR [Concomitant]
     Dosage: 10 MG, UNK
  14. PROCHLORPERAZ [Concomitant]
     Dosage: 10 MG, UNK

REACTIONS (2)
  - Injection site swelling [Unknown]
  - Injection site pain [Unknown]
